FAERS Safety Report 5719699-2 (Version None)
Quarter: 2008Q2

REPORT INFORMATION
  Report Type: 
  Country: None (occurrence: None)
  Receive Date: 20080424
  Receipt Date: 20080421
  Transmission Date: 20081010
  Serious: Yes (Death, Life-Threatening, Hospitalization)
  Sender: FDA-Public Use
  Company Number: 20084959

PATIENT
  Sex: Male

DRUGS (2)
  1. LIORESAL [Suspect]
     Indication: MUSCLE SPASTICITY
     Dosage: 1500 MCG, DAILY INTRATHECAL
     Route: 037
  2. VERSED [Concomitant]

REACTIONS (12)
  - AGITATION [None]
  - CARDIO-RESPIRATORY ARREST [None]
  - CATHETER RELATED COMPLICATION [None]
  - CONVULSION [None]
  - DISSEMINATED INTRAVASCULAR COAGULATION [None]
  - DRUG WITHDRAWAL SYNDROME [None]
  - HYPERTHERMIA [None]
  - HYPOTENSION [None]
  - IRRITABILITY [None]
  - NEUROLEPTIC MALIGNANT SYNDROME [None]
  - SOMNOLENCE [None]
  - TACHYCARDIA [None]
